FAERS Safety Report 19193610 (Version 2)
Quarter: 2021Q4

REPORT INFORMATION
  Report Type: Spontaneous
  Country: US (occurrence: US)
  Receive Date: 20210429
  Receipt Date: 20211229
  Transmission Date: 20220303
  Serious: No
  Sender: FDA-Public Use
  Company Number: US-GLENMARK PHARMACEUTICALS-2021GMK052691

PATIENT

DRUGS (2)
  1. TACROLIMUS [Suspect]
     Active Substance: TACROLIMUS
     Indication: Rash
     Dosage: UNK, BID
     Route: 061
  2. PREDNISONE [Concomitant]
     Active Substance: PREDNISONE
     Indication: Rash
     Dosage: UNK
     Route: 065

REACTIONS (4)
  - Wrong technique in product usage process [Unknown]
  - Extra dose administered [Unknown]
  - Rash [Unknown]
  - Drug ineffective [Unknown]
